FAERS Safety Report 23128080 (Version 1)
Quarter: 2023Q4

REPORT INFORMATION
  Report Type: Other
  Country: GB (occurrence: GB)
  Receive Date: 20231031
  Receipt Date: 20231031
  Transmission Date: 20240110
  Serious: Yes (Hospitalization, Other)
  Sender: FDA-Public Use
  Company Number: GB-LAURUS LABS LIMITED-2023LAU000091

PATIENT
  Age: 63 Year
  Sex: Male

DRUGS (19)
  1. METFORMIN [Suspect]
     Active Substance: METFORMIN HYDROCHLORIDE
     Indication: Product used for unknown indication
     Dosage: 2 GRAM,DAY
     Route: 065
  2. METFORMIN [Suspect]
     Active Substance: METFORMIN HYDROCHLORIDE
     Dosage: UNK
  3. RAMIPRIL [Suspect]
     Active Substance: RAMIPRIL
     Indication: Product used for unknown indication
     Dosage: 10 MILLIGRAM,DAY
     Route: 065
  4. INDAPAMIDE [Suspect]
     Active Substance: INDAPAMIDE
     Indication: Product used for unknown indication
     Dosage: 2.5 MILLIGRAM,EACH MORNING
     Route: 065
  5. SPIRONOLACTONE [Suspect]
     Active Substance: SPIRONOLACTONE
     Indication: Product used for unknown indication
     Dosage: 25 MILLIGRAM, DAY
     Route: 065
  6. INSULIN GLARGINE [Concomitant]
     Active Substance: INSULIN GLARGINE
     Indication: Product used for unknown indication
     Dosage: 100UNITS/ML ON MORNING
     Route: 065
  7. RANOLAZINE [Concomitant]
     Active Substance: RANOLAZINE
     Indication: Product used for unknown indication
     Dosage: 750 MILLIGRAM, DAY
     Route: 065
  8. GABAPENTIN [Concomitant]
     Active Substance: GABAPENTIN
     Indication: Product used for unknown indication
     Dosage: 400 MILLIGRAM, DAY
     Route: 065
     Dates: end: 20231009
  9. DULOXETINE [Concomitant]
     Active Substance: DULOXETINE
     Indication: Product used for unknown indication
     Dosage: 60 MILLIGRAM, DAY
     Route: 065
  10. LANSOPRAZOLE [Concomitant]
     Active Substance: LANSOPRAZOLE
     Indication: Product used for unknown indication
     Dosage: 60 MILLIGRAM, DAY
     Route: 065
  11. PERINDOPRIL [Concomitant]
     Active Substance: PERINDOPRIL
     Indication: Product used for unknown indication
     Dosage: UNK
     Route: 065
  12. CLOBETASOL [Concomitant]
     Active Substance: CLOBETASOL
     Indication: Product used for unknown indication
     Dosage: APPLY THINLY ONCE OR TWICE A DAY
     Route: 061
  13. PIOGLITAZONE [Concomitant]
     Active Substance: PIOGLITAZONE
     Indication: Product used for unknown indication
     Dosage: 45 MILLIGRAM, DAY
     Route: 065
  14. INDAPAMIDE [Concomitant]
     Active Substance: INDAPAMIDE
     Indication: Product used for unknown indication
     Dosage: UNK
     Route: 065
  15. BISOPROLOL [Concomitant]
     Active Substance: BISOPROLOL\BISOPROLOL FUMARATE
     Indication: Product used for unknown indication
     Dosage: 2.5 MILLIGRAM, DAY
     Route: 065
  16. ATORVASTATIN [Concomitant]
     Active Substance: ATORVASTATIN
     Indication: Product used for unknown indication
     Dosage: TOTAL DOSE 60 MILLIGRAM, ON
     Route: 065
  17. ATORVASTATIN [Concomitant]
     Active Substance: ATORVASTATIN
     Dosage: TOTAL DOSE 60 MILLIGRAM, ON
  18. CARBOMER [Concomitant]
     Active Substance: CARBOMER
     Indication: Product used for unknown indication
     Dosage: APPLY EYE GEL
     Route: 065
  19. ASPIRIN [Concomitant]
     Active Substance: ASPIRIN
     Indication: Product used for unknown indication
     Dosage: 75 MILLIGRAM, DAY
     Route: 065

REACTIONS (2)
  - Acute kidney injury [Recovered/Resolved]
  - Hyperkalaemia [Unknown]
